FAERS Safety Report 5520973-3 (Version None)
Quarter: 2007Q4

REPORT INFORMATION
  Report Type: 
  Country: None (occurrence: None)
  Receive Date: 20071119
  Receipt Date: 20071113
  Transmission Date: 20080405
  Serious: Yes (Hospitalization, Other)
  Sender: FDA-Public Use
  Company Number: GB-ROCHE-525568

PATIENT
  Age: 49 Year
  Sex: Female
  Weight: 115.2 kg

DRUGS (5)
  1. ORLISTAT [Suspect]
     Indication: OBESITY
     Route: 048
     Dates: start: 20070816, end: 20070928
  2. PREDNISOLONE [Concomitant]
     Indication: STEROID THERAPY
     Dosage: FREQUENCY REPORTED AS EVERY ALTERNATE DAY.
     Route: 048
  3. CARBAMAZEPINE [Concomitant]
     Indication: CONVULSION PROPHYLAXIS
     Route: 048
  4. DIAZEPAM [Concomitant]
     Route: 048
  5. CODEINE SUL TAB [Concomitant]
     Indication: ANALGESIA
     Route: 048

REACTIONS (2)
  - MUSCLE SPASMS [None]
  - MYELITIS TRANSVERSE [None]
